FAERS Safety Report 12221276 (Version 1)
Quarter: 2016Q1

REPORT INFORMATION
  Report Type: Spontaneous
  Country: US (occurrence: US)
  Receive Date: 20160330
  Receipt Date: 20160330
  Transmission Date: 20160526
  Serious: Yes (Hospitalization, Other)
  Sender: FDA-Public Use
  Company Number: US-GLAXOSMITHKLINE-US2016042570

PATIENT
  Sex: Female

DRUGS (8)
  1. MAGNESIUM OXIDE. [Concomitant]
     Active Substance: MAGNESIUM OXIDE
  2. SPIRIVA [Concomitant]
     Active Substance: TIOTROPIUM BROMIDE MONOHYDRATE
  3. ZOLOFT [Concomitant]
     Active Substance: SERTRALINE HYDROCHLORIDE
  4. TIKOSYN [Concomitant]
     Active Substance: DOFETILIDE
  5. KLONOPIN [Concomitant]
     Active Substance: CLONAZEPAM
  6. ADVAIR DISKUS [Suspect]
     Active Substance: FLUTICASONE PROPIONATE\SALMETEROL XINAFOATE
     Indication: CHRONIC OBSTRUCTIVE PULMONARY DISEASE
     Dosage: 1 PUFF(S), BID
     Route: 055
  7. NORVASC [Concomitant]
     Active Substance: AMLODIPINE BESYLATE
  8. BYSTOLIC [Concomitant]
     Active Substance: NEBIVOLOL HYDROCHLORIDE

REACTIONS (6)
  - Cardiac ablation [Recovered/Resolved]
  - Weight increased [Not Recovered/Not Resolved]
  - Atrial fibrillation [Recovered/Resolved]
  - Haemorrhage subcutaneous [Not Recovered/Not Resolved]
  - Skin atrophy [Not Recovered/Not Resolved]
  - Osteoporosis [Not Recovered/Not Resolved]

NARRATIVE: CASE EVENT DATE: 2011
